FAERS Safety Report 6679454-6 (Version None)
Quarter: 2010Q2

REPORT INFORMATION
  Report Type: 
  Country: None (occurrence: None)
  Receive Date: 20100413
  Receipt Date: 20100405
  Transmission Date: 20101027
  Serious: Yes (Hospitalization, Other)
  Sender: FDA-Public Use
  Company Number: JP-JNJFOC-20090607782

PATIENT
  Sex: Female
  Weight: 49.6 kg

DRUGS (4)
  1. REMICADE [Suspect]
     Indication: CROHN'S DISEASE
     Route: 042
  2. REMICADE [Suspect]
     Route: 042
  3. CIPROFLOXACIN HYDROCHLORIDE [Suspect]
     Indication: CROHN'S DISEASE
     Route: 048
  4. PENTASA [Concomitant]
     Indication: CROHN'S DISEASE
     Dosage: TOTAL DAILY DOSE REPORTED AS 2.25 GM
     Route: 048

REACTIONS (1)
  - RHABDOMYOLYSIS [None]
